FAERS Safety Report 23363657 (Version 1)
Quarter: 2024Q1

REPORT INFORMATION
  Report Type: Spontaneous
  Country: GB (occurrence: GB)
  Receive Date: 20240103
  Receipt Date: 20240103
  Transmission Date: 20240410
  Serious: Yes (Death)
  Sender: FDA-Public Use
  Company Number: GB-BIOGEN-2024BI01243284

PATIENT
  Sex: Male

DRUGS (1)
  1. PLEGRIDY [Suspect]
     Active Substance: PEGINTERFERON BETA-1A
     Indication: Multiple sclerosis
     Dosage: PLEGRIDY 125MCG / 0.5ML PREFILLED PEN ADMINISTERED BY SUBCUTANEOUS INJECTION
     Route: 050

REACTIONS (1)
  - Death [Fatal]
